FAERS Safety Report 9005285 (Version 4)
Quarter: 2013Q1

REPORT INFORMATION
  Report Type: Report from Study
  Country: GB (occurrence: GB)
  Receive Date: 20130108
  Receipt Date: 20130313
  Transmission Date: 20140127
  Serious: Yes (Hospitalization, Other)
  Sender: FDA-Public Use
  Company Number: GB-MERCK-1301GBR001936

PATIENT
  Age: 76 Year
  Sex: Male

DRUGS (5)
  1. VORINOSTAT [Suspect]
     Indication: PLASMA CELL MYELOMA
     Dosage: 300 MG, UNK
     Route: 048
     Dates: start: 20121212, end: 20121228
  2. LENALIDOMIDE [Suspect]
     Indication: PLASMA CELL MYELOMA
     Dosage: 10 MG, DAY 1-21
     Route: 048
     Dates: start: 20121212, end: 20121228
  3. DEXAMETHASONE [Suspect]
     Indication: PLASMA CELL MYELOMA
     Dosage: 20 MG IB DAY 1,2,3,4,8 15,16,17,18
     Route: 048
     Dates: start: 20120628
  4. CYCLOPHOSPHAMIDE [Suspect]
     Indication: PLASMA CELL MYELOMA
     Dosage: 500 MG, QW, TABLET
     Route: 048
     Dates: start: 20120628
  5. THALIDOMIDE [Suspect]
     Indication: PLASMA CELL MYELOMA
     Dosage: 50 MG, DAY 1-28
     Route: 048
     Dates: start: 20120628

REACTIONS (3)
  - Hypoglycaemia [Recovering/Resolving]
  - Sepsis [Recovering/Resolving]
  - Renal failure acute [Recovering/Resolving]
